FAERS Safety Report 14942084 (Version 1)
Quarter: 2018Q2

REPORT INFORMATION
  Report Type: Spontaneous
  Country: JP (occurrence: JP)
  Receive Date: 20180527
  Receipt Date: 20180527
  Transmission Date: 20180711
  Serious: Yes (Other)
  Sender: FDA-Public Use
  Company Number: JP-BAXTER-2018BAX011879

PATIENT
  Age: 80 Year
  Sex: Male

DRUGS (7)
  1. RITUXAN [Suspect]
     Active Substance: RITUXIMAB
     Indication: DIFFUSE LARGE B-CELL LYMPHOMA
     Dosage: R-THP/COP THERAPY
     Route: 042
     Dates: start: 20180315, end: 20180315
  2. THERARUBICIN [Suspect]
     Active Substance: PIRARUBICIN HYDROCHLORIDE
     Indication: DIFFUSE LARGE B-CELL LYMPHOMA
     Dosage: R-THP/COP THERAPY
     Route: 042
     Dates: start: 20180317, end: 20180317
  3. ENDOXAN 1G [Suspect]
     Active Substance: CYCLOPHOSPHAMIDE
     Indication: DIFFUSE LARGE B-CELL LYMPHOMA
     Dosage: DOSAGE FORM: INJECTION, R-THP/COP THERAPY
     Route: 042
     Dates: start: 20180317, end: 20180317
  4. HALOPERIDOL. [Suspect]
     Active Substance: HALOPERIDOL
     Indication: SUBSTANCE-INDUCED PSYCHOTIC DISORDER
     Dosage: 0.5 AMPULE IN THE MORNING AND 1 AMPULE IN THE EVENING
     Route: 065
     Dates: start: 20180319, end: 20180320
  5. PREDONINE [Suspect]
     Active Substance: PREDNISOLONE
     Indication: DIFFUSE LARGE B-CELL LYMPHOMA
     Dosage: R-THP/COP THERAPY, 10 TABLETS IN THE MORNING AND 4 TABLETS IN THE AFTERNOON
     Route: 065
     Dates: start: 20180317, end: 20180319
  6. PREDONINE [Suspect]
     Active Substance: PREDNISOLONE
     Dosage: DOSE REDUCED, WATER-SOLUBLE FOR INFUSION ADMINISTERED IN THE MORNING
     Route: 065
     Dates: start: 20180320
  7. ONCOVIN [Suspect]
     Active Substance: VINCRISTINE SULFATE
     Indication: DIFFUSE LARGE B-CELL LYMPHOMA
     Dosage: R-THP/COP THERAPY
     Route: 042
     Dates: start: 20180317, end: 20180317

REACTIONS (2)
  - Substance-induced psychotic disorder [Recovering/Resolving]
  - Drug effect decreased [Unknown]

NARRATIVE: CASE EVENT DATE: 20180319
